FAERS Safety Report 22637558 (Version 1)
Quarter: 2023Q2

REPORT INFORMATION
  Report Type: Spontaneous
  Country: US (occurrence: None)
  Receive Date: 20230623
  Receipt Date: 20230623
  Transmission Date: 20230721
  Serious: Yes (Disabling)
  Sender: FDA-Public Use
  Company Number: None

PATIENT
  Age: 68 Year
  Sex: Female
  Weight: 47.25 kg

DRUGS (1)
  1. EVENITY [Suspect]
     Active Substance: ROMOSOZUMAB-AQQG
     Indication: Osteoporosis
     Dosage: OTHER STRENGTH : 105 MG/ 1.7 ML;?OTHER QUANTITY : 2 SYRINGES PER DOSE;?OTHER FREQUENCY : ONCE EVERY
     Route: 058
     Dates: start: 20220429, end: 20230302

REACTIONS (3)
  - Palpitations [None]
  - Food intolerance [None]
  - Supraventricular tachycardia [None]

NARRATIVE: CASE EVENT DATE: 20221101
